FAERS Safety Report 19094258 (Version 3)
Quarter: 2021Q2

REPORT INFORMATION
  Report Type: Spontaneous
  Country: JP (occurrence: JP)
  Receive Date: 20210406
  Receipt Date: 20210522
  Transmission Date: 20210717
  Serious: Yes (Other)
  Sender: FDA-Public Use
  Company Number: JP-ABBVIE-21P-087-3843349-00

PATIENT
  Age: 83 Year
  Sex: Male
  Weight: 75 kg

DRUGS (1)
  1. LEUPLIN [Suspect]
     Active Substance: LEUPROLIDE ACETATE
     Indication: PROSTATE CANCER
     Dosage: 22.5 MILLIGRAM, Q6MONTHS
     Route: 058

REACTIONS (2)
  - Peripheral swelling [Recovered/Resolved]
  - Injection site pain [Recovering/Resolving]

NARRATIVE: CASE EVENT DATE: 20200820
